FAERS Safety Report 11056530 (Version 2)
Quarter: 2015Q2

REPORT INFORMATION
  Report Type: Spontaneous
  Country: US (occurrence: US)
  Receive Date: 20150422
  Receipt Date: 20150524
  Transmission Date: 20150821
  Serious: No
  Sender: FDA-Public Use
  Company Number: US-JNJFOC-20131110030

PATIENT
  Age: 74 Year
  Sex: Male

DRUGS (8)
  1. DIOVAN [Concomitant]
     Active Substance: VALSARTAN
  2. GABAPENTIN. [Concomitant]
     Active Substance: GABAPENTIN
  3. ASPIRIN. [Concomitant]
     Active Substance: ASPIRIN
  4. INVOKANA [Suspect]
     Active Substance: CANAGLIFLOZIN
     Indication: PRODUCT USED FOR UNKNOWN INDICATION
     Route: 048
  5. METFORMIN [Concomitant]
     Active Substance: METFORMIN HYDROCHLORIDE
  6. LOVASTATIN. [Concomitant]
     Active Substance: LOVASTATIN
  7. INVOKANA [Suspect]
     Active Substance: CANAGLIFLOZIN
     Indication: PRODUCT USED FOR UNKNOWN INDICATION
     Route: 048
  8. INVOKANA [Suspect]
     Active Substance: CANAGLIFLOZIN
     Indication: PRODUCT USED FOR UNKNOWN INDICATION
     Route: 048

REACTIONS (1)
  - Glomerular filtration rate decreased [Unknown]
